FAERS Safety Report 4889350-2 (Version None)
Quarter: 2006Q1

REPORT INFORMATION
  Report Type: 
  Country: None (occurrence: None)
  Receive Date: 20060120
  Receipt Date: 20060112
  Transmission Date: 20060701
  Serious: Yes (Death, Hospitalization)
  Sender: FDA-Public Use
  Company Number: A001-002-006744

PATIENT
  Age: 75 Year
  Sex: Female
  Weight: 98 kg

DRUGS (3)
  1. ARICEPT [Suspect]
     Indication: DEMENTIA
     Dosage: 10 MG, 1 IN 1 D; ORAL
     Route: 048
     Dates: start: 20020802, end: 20051201
  2. NAMENDA [Concomitant]
  3. LEXAPRO [Concomitant]

REACTIONS (3)
  - CARDIO-RESPIRATORY ARREST [None]
  - CONVULSION [None]
  - PNEUMONIA [None]
